FAERS Safety Report 11139252 (Version 1)
Quarter: 2015Q2

REPORT INFORMATION
  Report Type: Spontaneous
  Country: FR (occurrence: None)
  Receive Date: 20150522
  Receipt Date: 20150522
  Transmission Date: 20150821
  Serious: Yes (Hospitalization)
  Sender: FDA-Public Use
  Company Number: 2015DEPFR00652

PATIENT
  Age: 55 Year
  Sex: Female

DRUGS (2)
  1. TRASTUZUMAB (TRASTUZUMAB) [Suspect]
     Active Substance: TRASTUZUMAB
     Indication: PRODUCT USED FOR UNKNOWN INDICATION
     Route: 042
     Dates: start: 20140916, end: 20150408
  2. DEPOCYT [Suspect]
     Active Substance: CYTARABINE
     Indication: METASTASES TO MENINGES
     Route: 037
     Dates: start: 20141205, end: 20150331

REACTIONS (1)
  - Diplopia [None]

NARRATIVE: CASE EVENT DATE: 20150408
